FAERS Safety Report 7617581-7 (Version None)
Quarter: 2011Q3

REPORT INFORMATION
  Report Type: 
  Country: None (occurrence: None)
  Receive Date: 20110718
  Receipt Date: 20110707
  Transmission Date: 20111222
  Serious: Yes (Hospitalization)
  Sender: FDA-Public Use
  Company Number: US-CELGENEUS-163-21880-11070680

PATIENT
  Sex: Male

DRUGS (7)
  1. ZYRTEC [Concomitant]
     Route: 065
  2. LEVOTHYROXINE SODIUM [Concomitant]
     Route: 065
  3. CHONDROITIN 500 [Concomitant]
     Route: 065
  4. LIPITOR [Concomitant]
     Route: 065
  5. REVLIMID [Suspect]
     Dosage: 25 MILLIGRAM
     Route: 048
     Dates: start: 20110613
  6. MINOCIN [Concomitant]
     Route: 065
  7. GLUCOSAMINE [Concomitant]
     Route: 065

REACTIONS (2)
  - BLOOD CALCIUM INCREASED [None]
  - BACK PAIN [None]
